FAERS Safety Report 14979035 (Version 1)
Quarter: 2018Q2

REPORT INFORMATION
  Report Type: Spontaneous
  Country: ES (occurrence: ES)
  Receive Date: 20180606
  Receipt Date: 20180606
  Transmission Date: 20180711
  Serious: Yes (Other)
  Sender: FDA-Public Use
  Company Number: ES-PFIZER INC-2018223779

PATIENT
  Age: 76 Year
  Sex: Female

DRUGS (4)
  1. OMEPRAZOL [Concomitant]
     Active Substance: OMEPRAZOLE
     Indication: GASTROINTESTINAL PAIN
     Dosage: 20 MG, 1X/DAY
     Route: 048
     Dates: start: 20170320
  2. PARACETAMOL [Concomitant]
     Active Substance: ACETAMINOPHEN
     Indication: POST-TRAUMATIC PAIN
     Dosage: UNK
     Route: 048
     Dates: start: 20171103
  3. ATORVASTATIN CALCIUM. [Suspect]
     Active Substance: ATORVASTATIN CALCIUM
     Indication: HYPERCHOLESTEROLAEMIA
     Dosage: 40 MG, 1X/DAY
     Route: 048
     Dates: start: 20161128, end: 20171122
  4. PREGABALIN. [Suspect]
     Active Substance: PREGABALIN
     Indication: PARAESTHESIA
     Dosage: 1000 MG, 1X/DAY
     Route: 048
     Dates: start: 20170711, end: 20171103

REACTIONS (1)
  - Hepatitis cholestatic [Recovered/Resolved]

NARRATIVE: CASE EVENT DATE: 20171115
